FAERS Safety Report 8217899-3 (Version None)
Quarter: 2012Q1

REPORT INFORMATION
  Report Type: 
  Country: None (occurrence: None)
  Receive Date: 20120319
  Receipt Date: 20120309
  Transmission Date: 20120608
  Serious: Yes (Hospitalization)
  Sender: FDA-Public Use
  Company Number: US-BAYER-2011-053847

PATIENT
  Age: 16 Year
  Sex: Female
  Weight: 57 kg

DRUGS (6)
  1. DIPHENHYDRAMINE HCL [Concomitant]
     Dosage: 50 MG, UNK
     Route: 048
     Dates: start: 20090617
  2. YAZ [Suspect]
     Indication: ACNE
     Dosage: UNK
     Dates: start: 20081202, end: 20090629
  3. NAPROXEN [Concomitant]
     Dosage: 500 MG, UNK
     Route: 048
     Dates: start: 20090622
  4. AZITHROMYCIN [Concomitant]
     Indication: PNEUMONIA
     Dosage: UNK
     Route: 048
     Dates: start: 20090619
  5. AMOXICILLIN [Concomitant]
     Indication: PNEUMONIA
     Dosage: UNK
     Route: 048
     Dates: start: 20090619
  6. MINOCYCLINE HCL [Concomitant]
     Indication: ACNE
     Dosage: 50 MG, UNK
     Route: 048
     Dates: start: 20090527

REACTIONS (2)
  - PULMONARY INFARCTION [None]
  - PULMONARY EMBOLISM [None]
